FAERS Safety Report 14151469 (Version 4)
Quarter: 2018Q1

REPORT INFORMATION
  Report Type: Spontaneous
  Country: US (occurrence: US)
  Receive Date: 20171102
  Receipt Date: 20180125
  Transmission Date: 20180508
  Serious: Yes (Other)
  Sender: FDA-Public Use
  Company Number: US-PFIZER INC-2017467022

PATIENT
  Age: 84 Year
  Sex: Female

DRUGS (4)
  1. LEVOBUNOLOL [Concomitant]
     Active Substance: LEVOBUNOLOL
     Indication: GLAUCOMA
     Dosage: 1 GTT, DAILY (BOTH EYES)
     Route: 047
     Dates: start: 2012
  2. XALATAN [Suspect]
     Active Substance: LATANOPROST
     Indication: OPEN ANGLE GLAUCOMA
     Dosage: UNK
     Route: 047
     Dates: start: 20090507
  3. ATIVAN [Concomitant]
     Active Substance: LORAZEPAM
     Indication: ANXIETY
     Dosage: UNK
  4. AREDSAN [Concomitant]
     Indication: EYE DISORDER
     Dosage: UNK

REACTIONS (11)
  - Chapped lips [Unknown]
  - Lip swelling [Unknown]
  - Rash [Not Recovered/Not Resolved]
  - Lip erythema [Unknown]
  - Facial pain [Unknown]
  - Sjogren^s syndrome [Unknown]
  - Reaction to excipient [Unknown]
  - Tongue discomfort [Recovered/Resolved]
  - Lip dry [Unknown]
  - Drooling [Unknown]
  - Nasal discomfort [Unknown]

NARRATIVE: CASE EVENT DATE: 2012
